FAERS Safety Report 6304116-4 (Version None)
Quarter: 2009Q3

REPORT INFORMATION
  Report Type: 
  Country: None (occurrence: None)
  Receive Date: 20090806
  Receipt Date: 20080325
  Transmission Date: 20100115
  Serious: No
  Sender: FDA-Public Use
  Company Number: DPC-08010

PATIENT

DRUGS (2)
  1. SOJOURN [Suspect]
     Indication: SURGERY
     Dosage: INHALATION
     Route: 055
  2. SOJOURN [Suspect]

REACTIONS (1)
  - MUSCLE TWITCHING [None]
